FAERS Safety Report 10248705 (Version 1)
Quarter: 2014Q2

REPORT INFORMATION
  Report Type: Spontaneous
  Country: NO (occurrence: None)
  Receive Date: 20140618
  Receipt Date: 20140618
  Transmission Date: 20141212
  Serious: Yes (Other)
  Sender: FDA-Public Use
  Company Number: NSR_01563_2014

PATIENT
  Age: 25 Year
  Sex: Female
  Weight: 56 kg

DRUGS (4)
  1. METOCLOPRAMIDE [Suspect]
     Indication: VERTIGO
     Route: 030
  2. METOCLOPRAMIDE [Suspect]
     Indication: NAUSEA
     Route: 030
  3. METOCLOPRAMIDE [Suspect]
     Indication: VOMITING
     Route: 030
  4. DIPHENHYDRAMINE [Concomitant]

REACTIONS (34)
  - Fatigue [None]
  - Confusional state [None]
  - Somnolence [None]
  - Gastroenteritis [None]
  - Dizziness [None]
  - Anxiety [None]
  - Dizziness [None]
  - Asthenia [None]
  - Feeling abnormal [None]
  - Thinking abnormal [None]
  - Suicidal ideation [None]
  - Palpitations [None]
  - Unevaluable event [None]
  - Depression [None]
  - Mental impairment [None]
  - Panic attack [None]
  - Nightmare [None]
  - Fatigue [None]
  - Extrapyramidal disorder [None]
  - Tardive dyskinesia [None]
  - Chills [None]
  - Abdominal pain upper [None]
  - Dyspnoea [None]
  - Speech disorder [None]
  - Dysphagia [None]
  - Dizziness [None]
  - Heart rate irregular [None]
  - Headache [None]
  - Hyperhidrosis [None]
  - Decreased appetite [None]
  - Urinary incontinence [None]
  - Muscle spasms [None]
  - Yellow skin [None]
  - Ocular icterus [None]
